FAERS Safety Report 26157475 (Version 1)
Quarter: 2025Q4

REPORT INFORMATION
  Report Type: Spontaneous
  Country: GB (occurrence: GB)
  Receive Date: 20251215
  Receipt Date: 20251215
  Transmission Date: 20260117
  Serious: Yes (Other)
  Sender: BAYER HEALTHCARE PHARMACEUTICALS INC.
  Company Number: None

PATIENT
  Age: 47 Year
  Sex: Female
  Weight: 72 kg

DRUGS (6)
  1. NORETHINDRONE [Suspect]
     Active Substance: NORETHINDRONE
     Indication: Endometriosis
     Route: 048
     Dates: start: 20250825, end: 20251208
  2. NORETHINDRONE [Suspect]
     Active Substance: NORETHINDRONE
     Indication: Genital haemorrhage
  3. ESTRADIOL [Suspect]
     Active Substance: ESTRADIOL
     Indication: Genital haemorrhage
     Dates: start: 20250825, end: 20251208
  4. ESTRADIOL [Suspect]
     Active Substance: ESTRADIOL
     Indication: Endometriosis
  5. RELUGOLIX [Suspect]
     Active Substance: RELUGOLIX
     Indication: Endometriosis
     Dates: start: 20250825, end: 20251208
  6. RELUGOLIX [Suspect]
     Active Substance: RELUGOLIX
     Indication: Genital haemorrhage

REACTIONS (2)
  - Parosmia [Recovering/Resolving]
  - Drug ineffective [Unknown]

NARRATIVE: CASE EVENT DATE: 20250825
